FAERS Safety Report 22333420 (Version 4)
Quarter: 2023Q2

REPORT INFORMATION
  Report Type: Spontaneous
  Country: US (occurrence: US)
  Receive Date: 20230517
  Receipt Date: 20230524
  Transmission Date: 20230722
  Serious: No
  Sender: FDA-Public Use
  Company Number: US-BIOGEN-2023BI01205589

PATIENT
  Age: 38 Year
  Sex: Female

DRUGS (1)
  1. TYSABRI [Suspect]
     Active Substance: NATALIZUMAB
     Indication: Multiple sclerosis
     Route: 050
     Dates: start: 20110419

REACTIONS (4)
  - Inappropriate schedule of product administration [Unknown]
  - Pain [Unknown]
  - General physical health deterioration [Unknown]
  - Tremor [Unknown]

NARRATIVE: CASE EVENT DATE: 20230501
